FAERS Safety Report 24140239 (Version 3)
Quarter: 2024Q3

REPORT INFORMATION
  Report Type: Spontaneous
  Country: US (occurrence: US)
  Receive Date: 20240726
  Receipt Date: 20240805
  Transmission Date: 20241017
  Serious: No
  Sender: SANOFI AVENTIS
  Company Number: US-SA-SAC20240723001426

PATIENT
  Sex: Female
  Weight: 63 kg

DRUGS (18)
  1. DUPIXENT [Suspect]
     Active Substance: DUPILUMAB
     Indication: Asthma
     Dosage: 300 MG, QOW
     Route: 058
  2. DUPIXENT [Suspect]
     Active Substance: DUPILUMAB
     Dosage: 300 MG, QW
     Route: 058
  3. GABAPENTIN [Concomitant]
     Active Substance: GABAPENTIN
  4. ALBUTEROL SULFATE [Concomitant]
     Active Substance: ALBUTEROL SULFATE
  5. MUCINEX DM [Concomitant]
     Active Substance: DEXTROMETHORPHAN HYDROBROMIDE\GUAIFENESIN
  6. MELATONIN [Concomitant]
     Active Substance: MELATONIN
  7. ALBUTEROL SULFATE [Concomitant]
     Active Substance: ALBUTEROL SULFATE
  8. LIPITOR [Concomitant]
     Active Substance: ATORVASTATIN CALCIUM
  9. METFORMIN HYDROCHLORIDE [Concomitant]
     Active Substance: METFORMIN HYDROCHLORIDE
  10. SINGULAIR [Concomitant]
     Active Substance: MONTELUKAST SODIUM
  11. VORICONAZOLE [Concomitant]
     Active Substance: VORICONAZOLE
  12. BENZONATATE [Concomitant]
     Active Substance: BENZONATATE
  13. XYZAL [Concomitant]
     Active Substance: LEVOCETIRIZINE DIHYDROCHLORIDE
  14. TRELEGY ELLIPTA [Concomitant]
     Active Substance: FLUTICASONE FUROATE\UMECLIDINIUM BROMIDE\VILANTEROL TRIFENATATE
  15. VITAMINS [Concomitant]
     Active Substance: VITAMINS
  16. PROBIOTICS NOS [Concomitant]
     Active Substance: PROBIOTICS NOS
  17. CITRACAL + D3 [Concomitant]
  18. OMEPRAZOLE [Concomitant]
     Active Substance: OMEPRAZOLE

REACTIONS (4)
  - Cough [Not Recovered/Not Resolved]
  - Dyspnoea [Unknown]
  - Asthma [Not Recovered/Not Resolved]
  - Drug ineffective [Not Recovered/Not Resolved]
